FAERS Safety Report 21269466 (Version 1)
Quarter: 2022Q3

REPORT INFORMATION
  Report Type: Spontaneous
  Country: US (occurrence: None)
  Receive Date: 20220829
  Receipt Date: 20220829
  Transmission Date: 20221027
  Serious: Yes (Death)
  Sender: FDA-Public Use
  Company Number: None

PATIENT
  Age: 81 Year
  Sex: Female
  Weight: 121.2 kg

DRUGS (18)
  1. CAPECITABINE [Suspect]
     Active Substance: CAPECITABINE
     Indication: Lung neoplasm malignant
     Dosage: FREQUENCY : TWICE A DAY;?
     Route: 048
  2. CAPECITABINE [Suspect]
     Active Substance: CAPECITABINE
     Indication: Lung neoplasm malignant
  3. ASPIRIN [Concomitant]
     Active Substance: ASPIRIN
  4. ATORVASTATIN [Concomitant]
     Active Substance: ATORVASTATIN
  5. CALCIUM [Concomitant]
     Active Substance: CALCIUM
  6. CALCIUM CARBONATE [Concomitant]
     Active Substance: CALCIUM CARBONATE
  7. CLOPIDOGREL BISULFATE [Concomitant]
     Active Substance: CLOPIDOGREL BISULFATE
  8. LASIX [Concomitant]
     Active Substance: FUROSEMIDE
  9. LEVOTHYROXINE [Concomitant]
     Active Substance: LEVOTHYROXINE
  10. LOSARTAN [Concomitant]
     Active Substance: LOSARTAN
  11. POTASSIUM [Concomitant]
     Active Substance: POTASSIUM
  12. METOPROLOL TARTRATE [Concomitant]
     Active Substance: METOPROLOL TARTRATE
  13. VITAMINS [Concomitant]
     Active Substance: VITAMINS
  14. OMEPRAZOLE [Concomitant]
     Active Substance: OMEPRAZOLE
  15. TRIAMCINOLONE [Concomitant]
     Active Substance: TRIAMCINOLONE
  16. TUMS [Concomitant]
     Active Substance: CALCIUM CARBONATE
  17. TUMS CHEWY BITES [Concomitant]
     Active Substance: CALCIUM CARBONATE
  18. VITAMIN B12 [Concomitant]
     Active Substance: CYANOCOBALAMIN

REACTIONS (1)
  - Death [None]
